FAERS Safety Report 9555534 (Version 1)
Quarter: 2013Q3

REPORT INFORMATION
  Report Type: Spontaneous
  Country: US (occurrence: None)
  Receive Date: 20130904
  Receipt Date: 20130904
  Transmission Date: 20140515
  Serious: Yes (Hospitalization)
  Sender: FDA-Public Use
  Company Number: A-NJ2012-74448

PATIENT
  Age: 56 Year
  Sex: Female

DRUGS (3)
  1. VELETRI [Suspect]
     Indication: PULMONARY ARTERIAL HYPERTENSION
     Dosage: 70 NG/KG, PER MIN, IV DRIP
     Route: 041
     Dates: start: 20121103
  2. LETAIRIS (AMBRISENTAN) (TABLETS) [Concomitant]
  3. SILDENAFIL (SILDENAFIL) [Concomitant]

REACTIONS (11)
  - Rebound effect [None]
  - Dyspnoea [None]
  - Device leakage [None]
  - Device damage [None]
  - Blood potassium abnormal [None]
  - Polyuria [None]
  - Fatigue [None]
  - Flushing [None]
  - Nausea [None]
  - Diarrhoea [None]
  - Fluid overload [None]
